FAERS Safety Report 9853488 (Version 1)
Quarter: 2014Q1

REPORT INFORMATION
  Report Type: Report from Study
  Country: GB (occurrence: GB)
  Receive Date: 20140129
  Receipt Date: 20140129
  Transmission Date: 20141002
  Serious: Yes (Disabling)
  Sender: FDA-Public Use
  Company Number: GB-GLAXOSMITHKLINE-B0944806B

PATIENT
  Age: 65 Year
  Sex: Male
  Weight: 87.9 kg

DRUGS (2)
  1. TRAMETINIB [Suspect]
     Indication: METASTATIC MALIGNANT MELANOMA
     Route: 048
     Dates: start: 20131001, end: 20140114
  2. DABRAFENIB [Suspect]
     Indication: METASTATIC MALIGNANT MELANOMA
     Route: 048
     Dates: start: 20131001

REACTIONS (1)
  - Neuropathy peripheral [Not Recovered/Not Resolved]
